FAERS Safety Report 16259348 (Version 1)
Quarter: 2019Q2

REPORT INFORMATION
  Report Type: Report from Study
  Country: None (occurrence: US)
  Receive Date: 20190501
  Receipt Date: 20190501
  Transmission Date: 20190711
  Serious: Yes (Hospitalization, Other)
  Sender: FDA-Public Use
  Company Number: US-ABBVIE-19K-163-2694060-00

PATIENT
  Age: 67 Year
  Sex: Female
  Weight: 59.02 kg

DRUGS (5)
  1. METHOTREXATE. [Concomitant]
     Active Substance: METHOTREXATE
     Indication: RHEUMATOID ARTHRITIS
     Route: 048
  2. ZOCOR [Concomitant]
     Active Substance: SIMVASTATIN
     Indication: BLOOD CHOLESTEROL INCREASED
     Route: 048
  3. CALCIUM [Concomitant]
     Active Substance: CALCIUM
     Indication: MINERAL SUPPLEMENTATION
  4. HUMIRA [Suspect]
     Active Substance: ADALIMUMAB
     Indication: RHEUMATOID ARTHRITIS
     Route: 058
     Dates: end: 20190203
  5. FOLIC ACID. [Concomitant]
     Active Substance: FOLIC ACID
     Indication: RHEUMATOID ARTHRITIS

REACTIONS (9)
  - Myocardial infarction [Recovering/Resolving]
  - Electrocardiogram abnormal [Unknown]
  - Coronary artery occlusion [Unknown]
  - Throat irritation [Unknown]
  - Hyperhidrosis [Unknown]
  - Gastroenteritis viral [Not Recovered/Not Resolved]
  - Troponin increased [Unknown]
  - Dyspepsia [Unknown]
  - Chest discomfort [Unknown]

NARRATIVE: CASE EVENT DATE: 201902
